FAERS Safety Report 5800740-3 (Version None)
Quarter: 2008Q3

REPORT INFORMATION
  Report Type: 
  Country: None (occurrence: None)
  Receive Date: 20080701
  Receipt Date: 20080617
  Transmission Date: 20090109
  Serious: Yes (Other)
  Sender: FDA-Public Use
  Company Number: US023872

PATIENT
  Age: 62 Year
  Sex: Female

DRUGS (6)
  1. FENTANYL [Suspect]
     Indication: PREOPERATIVE CARE
     Dates: start: 20070529
  2. NARCAN [Suspect]
     Indication: SOMNOLENCE
     Dosage: 2 DOSES
     Dates: start: 20070529, end: 20070529
  3. OXYCONTIN [Suspect]
     Dosage: 10 MG
     Dates: start: 20070529, end: 20070529
  4. MIDAZOLAM HCL [Suspect]
     Dosage: 3 MG
  5. GABAPENTIN [Suspect]
  6. CITALOPRAM HYDROBROMIDE [Suspect]

REACTIONS (14)
  - DIPLOPIA [None]
  - DISCOMFORT [None]
  - EMBOLISM [None]
  - EYE DISORDER [None]
  - EYE PAIN [None]
  - FEELING ABNORMAL [None]
  - HYPERTENSIVE CRISIS [None]
  - INJURY [None]
  - NECK PAIN [None]
  - PHARMACEUTICAL PRODUCT COMPLAINT [None]
  - POST PROCEDURAL COMPLICATION [None]
  - SOMNOLENCE [None]
  - VISION BLURRED [None]
  - VISUAL FIELD DEFECT [None]
